FAERS Safety Report 14931215 (Version 1)
Quarter: 2018Q2

REPORT INFORMATION
  Report Type: Spontaneous
  Country: GB (occurrence: GB)
  Receive Date: 20180524
  Receipt Date: 20180524
  Transmission Date: 20180711
  Serious: Yes (Hospitalization)
  Sender: FDA-Public Use
  Company Number: GB-TEVA-2018-GB-896940

PATIENT
  Age: 22 Year
  Sex: Female

DRUGS (10)
  1. SALBUTAMOL [Concomitant]
     Active Substance: ALBUTEROL
     Dosage: 1 OR 2 PUFFS
     Route: 055
  2. RELVAR ELLIPTA [Concomitant]
     Active Substance: FLUTICASONE FUROATE\VILANTEROL TRIFENATATE
     Dosage: 92MICROGRAMS/DOSE / 22MICROGRAMS/DOSE.?1 DOSE EACH DAY
     Route: 055
  3. CODEINE [Concomitant]
     Active Substance: CODEINE
     Indication: NEURALGIA
     Dosage: 1 OR 2 EVERY 4 HOURS
  4. RANITIDINE. [Concomitant]
     Active Substance: RANITIDINE
     Dosage: 1 TO BE TAKEN AT NIGHT
  5. MOMETASONE [Concomitant]
     Active Substance: MOMETASONE
     Dosage: 4 DOSAGE FORMS DAILY; TWO SPRAYS (IN EACH NOSTRIL)
     Route: 045
  6. BETAMETHASONE VALERATE. [Concomitant]
     Active Substance: BETAMETHASONE VALERATE
  7. DICLOFENAC [Suspect]
     Active Substance: DICLOFENAC
     Dosage: 150 MILLIGRAM DAILY; FOR ONE MONTH
     Route: 065
     Dates: start: 20170921
  8. ACICLOVIR [Concomitant]
     Active Substance: ACYCLOVIR
     Indication: ECZEMA HERPETICUM
     Dosage: 800 MILLIGRAM DAILY;
  9. AMITRIPTYLINE [Concomitant]
     Active Substance: AMITRIPTYLINE
     Indication: FACIAL NEURALGIA
     Dosage: ON FOR ONE MONTH
  10. HYDROCORTISONE. [Concomitant]
     Active Substance: HYDROCORTISONE
     Dosage: 1 PERCENT DAILY; APPLIES TO FACE TWICE DAILY (LOWER AREA OF FACE AROUND CHIN, TO SIDES OF MOUTH)

REACTIONS (4)
  - Abnormal loss of weight [Unknown]
  - Colitis [Recovered/Resolved]
  - Diarrhoea haemorrhagic [Unknown]
  - Abdominal pain [Unknown]
